FAERS Safety Report 7618414-5 (Version None)
Quarter: 2011Q3

REPORT INFORMATION
  Report Type: 
  Country: None (occurrence: None)
  Receive Date: 20110718
  Receipt Date: 20110714
  Transmission Date: 20111222
  Serious: No
  Sender: FDA-Public Use
  Company Number: US-B.I. PHARMACEUTICALS,INC./RIDGEFIELD-2011-BP-17732BP

PATIENT
  Age: 68 Year
  Sex: Female

DRUGS (9)
  1. FLECAINIDE ACETATE [Concomitant]
     Dosage: 0.5 MG
     Dates: start: 19800101
  2. OMEPRAZOLE [Concomitant]
     Indication: HERNIA
     Dosage: 20 MG
     Dates: start: 20040101
  3. PRADAXA [Suspect]
     Indication: ATRIAL FIBRILLATION
     Dosage: 300 MG
     Route: 048
     Dates: start: 20110101
  4. COZAAR [Concomitant]
     Indication: HYPERTENSION
     Dosage: 50 MG
     Dates: start: 20050101
  5. ALPRAZOLAM [Concomitant]
     Indication: ANXIETY
     Dosage: 0.25 MG
     Dates: start: 20090101
  6. DILTIAZEM [Concomitant]
     Indication: ATRIAL FIBRILLATION
     Dosage: 240 MG
     Dates: start: 20110101
  7. ASPIRIN [Concomitant]
     Indication: ROUTINE HEALTH MAINTENANCE
     Dosage: 81 MG
     Dates: start: 19800101
  8. LEVOTHYROXINE SODIUM [Concomitant]
     Indication: HYPOTHYROIDISM
     Dosage: 100 MG
     Dates: start: 19800101
  9. ESTROPIPATE [Concomitant]
     Indication: ROUTINE HEALTH MAINTENANCE
     Dosage: 0.75 MG

REACTIONS (2)
  - ARTHRALGIA [None]
  - JOINT SWELLING [None]
